FAERS Safety Report 8613309-2 (Version None)
Quarter: 2012Q3

REPORT INFORMATION
  Report Type: 
  Country: None (occurrence: None)
  Receive Date: 20120822
  Receipt Date: 20120803
  Transmission Date: 20120928
  Serious: Yes (Other)
  Sender: FDA-Public Use
  Company Number: AU-009507513-1208AUS001910

PATIENT

DRUGS (3)
  1. EFFEXOR [Concomitant]
     Dosage: 150 MG, QD
  2. SAPHRIS [Suspect]
     Indication: AFFECTIVE DISORDER
     Dosage: 5 MG, UNK
     Route: 060
  3. SAPHRIS [Suspect]
     Dosage: UNK
     Route: 060

REACTIONS (1)
  - OBSESSIVE-COMPULSIVE DISORDER [None]
